FAERS Safety Report 8178528-0 (Version None)
Quarter: 2012Q1

REPORT INFORMATION
  Report Type: 
  Country: None (occurrence: None)
  Receive Date: 20120301
  Receipt Date: 20120221
  Transmission Date: 20120608
  Serious: Yes (Hospitalization)
  Sender: FDA-Public Use
  Company Number: KR-BAXTER-2012BH005281

PATIENT
  Age: 40 Year
  Sex: Male
  Weight: 71 kg

DRUGS (11)
  1. RECORMON PS [Concomitant]
     Indication: BONE MARROW FAILURE
     Route: 058
     Dates: start: 20090922
  2. EXTRANEAL [Suspect]
     Indication: PERITONEAL DIALYSIS
     Route: 033
     Dates: start: 20111121
  3. PHYSIOSOL IN PLASTIC CONTAINER [Suspect]
     Indication: PERITONEAL DIALYSIS
     Route: 033
     Dates: start: 20111006
  4. PHYSIOSOL IN PLASTIC CONTAINER [Suspect]
     Indication: RENAL FAILURE CHRONIC
     Route: 033
     Dates: start: 20111006
  5. NOVOLET N [Concomitant]
     Indication: HYPERGLYCAEMIA
     Route: 058
     Dates: start: 20031122
  6. EXTRANEAL [Suspect]
     Indication: RENAL FAILURE CHRONIC
     Route: 033
     Dates: start: 20111121
  7. CALCIUM CARBONATE [Concomitant]
     Indication: HYPERPHOSPHATAEMIA
     Route: 048
     Dates: start: 20110615
  8. IRBESARTAN [Concomitant]
     Indication: HYPERTENSION
     Route: 048
     Dates: start: 20060725
  9. ALLOPURINOL [Concomitant]
     Indication: URINARY TRACT DISORDER
     Route: 048
     Dates: start: 20110718
  10. MOTILIUM-M [Concomitant]
     Indication: PRODUCT USED FOR UNKNOWN INDICATION
     Route: 048
     Dates: start: 20110718
  11. SODIUM BICARBONATE [Concomitant]
     Indication: URINARY TRACT DISORDER
     Route: 048
     Dates: start: 20110928

REACTIONS (2)
  - LOCALISED INFECTION [None]
  - NEUROPATHIC ARTHROPATHY [None]
